FAERS Safety Report 20994758 (Version 1)
Quarter: 2022Q2

REPORT INFORMATION
  Report Type: Report from Study
  Country: US (occurrence: US)
  Receive Date: 20220622
  Receipt Date: 20220622
  Transmission Date: 20220721
  Serious: Yes (Other)
  Sender: FDA-Public Use
  Company Number: US-BRISTOL-MYERS SQUIBB COMPANY-2022-056334

PATIENT
  Age: 60 Year
  Sex: Male
  Weight: 71.67 kg

DRUGS (1)
  1. POMALYST [Suspect]
     Active Substance: POMALIDOMIDE
     Indication: Plasma cell myeloma in remission
     Dosage: FOR 21 DAYS, OFF 7 DAYS
     Route: 048
     Dates: start: 20211213

REACTIONS (2)
  - Pain in extremity [Unknown]
  - Gait disturbance [Unknown]
